FAERS Safety Report 15555690 (Version 1)
Quarter: 2018Q4

REPORT INFORMATION
  Report Type: Report from Study
  Country: US (occurrence: US)
  Receive Date: 20181026
  Receipt Date: 20181026
  Transmission Date: 20190205
  Serious: Yes (Hospitalization)
  Sender: FDA-Public Use
  Company Number: US-JNJFOC-20181009321

PATIENT
  Age: 91 Year
  Sex: Male

DRUGS (9)
  1. XGEVA [Concomitant]
     Active Substance: DENOSUMAB
  2. IMBRUVICA [Suspect]
     Active Substance: IBRUTINIB
     Indication: CHRONIC LYMPHOCYTIC LEUKAEMIA
     Dosage: 420 MG, QD
     Route: 048
     Dates: start: 20180922, end: 2018
  3. CALCIUM W/ERGOCALCIFEROL [Concomitant]
  4. MULTIVITAMINS [Concomitant]
     Active Substance: VITAMINS
  5. TAMSULOSIN [Concomitant]
     Active Substance: TAMSULOSIN
  6. IMBRUVICA [Suspect]
     Active Substance: IBRUTINIB
     Indication: METASTASIS
     Dosage: 420 MG, QD
     Route: 048
     Dates: start: 20180922, end: 2018
  7. METOPROLOL SUCCINATE. [Concomitant]
     Active Substance: METOPROLOL SUCCINATE
  8. IMBRUVICA [Suspect]
     Active Substance: IBRUTINIB
     Indication: BONE CANCER
     Dosage: 420 MG, QD
     Route: 048
     Dates: start: 20180922, end: 2018
  9. CALCIUM W/VITAMIN D3 [Concomitant]
     Active Substance: CALCIUM\CHOLECALCIFEROL

REACTIONS (11)
  - Nausea [Recovering/Resolving]
  - Platelet count decreased [Unknown]
  - Weight decreased [Unknown]
  - Product use in unapproved indication [Unknown]
  - Fall [Unknown]
  - Blood count abnormal [Unknown]
  - Asthenia [Unknown]
  - Fatigue [Unknown]
  - Off label use [Unknown]
  - Diarrhoea [Recovering/Resolving]
  - Decreased appetite [Unknown]

NARRATIVE: CASE EVENT DATE: 2018
